FAERS Safety Report 4698662-7 (Version None)
Quarter: 2005Q2

REPORT INFORMATION
  Report Type: 
  Country: None (occurrence: None)
  Receive Date: 20050622
  Receipt Date: 20050606
  Transmission Date: 20051028
  Serious: Yes (Hospitalization)
  Sender: FDA-Public Use
  Company Number: 11463

PATIENT
  Age: 51 Year
  Sex: Female

DRUGS (3)
  1. LEUCOVORIN [Suspect]
     Indication: COLON CANCER STAGE III
     Dosage: 400 MG/M2 DAILY IV
     Route: 042
     Dates: start: 20050118
  2. FLUOROURACIL [Suspect]
     Indication: COLON CANCER STAGE III
     Dosage: 2400/MG/M2 DAILY IV
     Route: 042
     Dates: start: 20050118, end: 20050524
  3. IRINOTECAN [Suspect]
     Indication: COLON CANCER STAGE III
     Dosage: 180 MG/M2 DAILY IV
     Route: 042
     Dates: start: 20050524, end: 20050524

REACTIONS (3)
  - MUSCULOSKELETAL STIFFNESS [None]
  - MYALGIA [None]
  - NECK PAIN [None]
